FAERS Safety Report 8870890 (Version 1)
Quarter: 2012Q4

REPORT INFORMATION
  Report Type: Spontaneous
  Country: US (occurrence: None)
  Receive Date: 20121026
  Receipt Date: 20121026
  Transmission Date: 20130627
  Serious: Yes (Other)
  Sender: FDA-Public Use
  Company Number: None

PATIENT
  Age: 25 Year
  Sex: Male
  Weight: 83.92 kg

DRUGS (2)
  1. CREST PRO-HEALTH [Suspect]
     Indication: ORAL HYGIENE
     Route: 004
     Dates: start: 20121003, end: 20121023
  2. CREST PRO-HEALTH [Suspect]
     Indication: ORAL HYGIENE
     Dates: start: 20121003, end: 20121023

REACTIONS (6)
  - Oral mucosal exfoliation [None]
  - Product taste abnormal [None]
  - Oral discomfort [None]
  - Tongue blistering [None]
  - Ageusia [None]
  - Hypoaesthesia oral [None]
